FAERS Safety Report 16371857 (Version 9)
Quarter: 2022Q1

REPORT INFORMATION
  Report Type: Spontaneous
  Country: US (occurrence: US)
  Receive Date: 20190530
  Receipt Date: 20220110
  Transmission Date: 20220423
  Serious: Yes (Hospitalization)
  Sender: FDA-Public Use
  Company Number: US-PFIZER INC-2019221519

PATIENT
  Age: 83 Year
  Sex: Male
  Weight: 124.74 kg

DRUGS (13)
  1. DETROL LA [Suspect]
     Active Substance: TOLTERODINE TARTRATE
     Indication: Urinary incontinence
     Dosage: 2 MG, 1X/DAY
     Route: 048
     Dates: start: 201808
  2. DETROL LA [Suspect]
     Active Substance: TOLTERODINE TARTRATE
     Indication: Micturition urgency
     Dosage: 4 MG, UNK (QUANTITY FOR 90 DAYS: 180)
     Dates: start: 201810
  3. DETROL LA [Suspect]
     Active Substance: TOLTERODINE TARTRATE
     Dosage: 8 MG, DAILY  (1 PO BID (TWICE A DAY)
     Route: 048
  4. DETROL LA [Suspect]
     Active Substance: TOLTERODINE TARTRATE
     Dosage: 4 MG, 1X/DAY
     Route: 048
  5. DETROL LA [Suspect]
     Active Substance: TOLTERODINE TARTRATE
     Dosage: 4 MG, 2X/DAY
  6. FINASTERIDE [Concomitant]
     Active Substance: FINASTERIDE
     Indication: Prostatic disorder
     Dosage: 5 MG, 1X/DAY
     Route: 048
  7. AMLODIPINE [Concomitant]
     Active Substance: AMLODIPINE BESYLATE
     Indication: Hypertension
     Dosage: 5 MG, 1X/DAY
     Route: 048
  8. GLIPIZIDE [Concomitant]
     Active Substance: GLIPIZIDE
     Indication: Diabetes mellitus
     Dosage: 2.5 MG, 1X/DAY [ONCE A DAY BY MOUTH   ]
     Route: 048
  9. FUROSEMIDE [Concomitant]
     Active Substance: FUROSEMIDE
     Dosage: 40 MG, 1X/DAY
     Route: 048
     Dates: start: 2018
  10. ACETAMINOPHEN\HYDROCODONE [Concomitant]
     Active Substance: ACETAMINOPHEN\HYDROCODONE
     Indication: Pain
     Dosage: UNK, 4X/DAY [HYDROCODONE BITARTRATE: 10 MG-ACETAMINOPHEN: 325 MG]
     Route: 048
  11. CARVEDILOL [Concomitant]
     Active Substance: CARVEDILOL
     Indication: Cardiac disorder
     Dosage: 2.5 MG, 2X/DAY
     Route: 048
  12. ATORVASTATIN [Concomitant]
     Active Substance: ATORVASTATIN
     Indication: Blood cholesterol abnormal
     Dosage: 20 MG, 1X/DAY
     Route: 048
  13. TOLTERODINE [Concomitant]
     Active Substance: TOLTERODINE
     Dosage: 4 MG, 1X/DAY
     Route: 048
     Dates: start: 201810

REACTIONS (13)
  - Cough [Recovered/Resolved]
  - Dyspnoea [Unknown]
  - Drug ineffective [Unknown]
  - Off label use [Unknown]
  - Illness [Unknown]
  - Sciatica [Unknown]
  - Weight decreased [Unknown]
  - Body height decreased [Unknown]
  - Benign prostatic hyperplasia [Unknown]
  - Tinnitus [Unknown]
  - Fatigue [Unknown]
  - Back pain [Unknown]
  - Neck pain [Unknown]

NARRATIVE: CASE EVENT DATE: 20180801
